FAERS Safety Report 25272913 (Version 3)
Quarter: 2025Q2

REPORT INFORMATION
  Report Type: Spontaneous
  Country: GB (occurrence: GB)
  Receive Date: 20250506
  Receipt Date: 20250604
  Transmission Date: 20250717
  Serious: Yes (Other)
  Sender: MYLAN
  Company Number: GB-MYLANLABS-2025M1021325

PATIENT
  Sex: Female

DRUGS (6)
  1. CLOZARIL [Suspect]
     Active Substance: CLOZAPINE
     Indication: Post-traumatic stress disorder
  2. CLOZARIL [Suspect]
     Active Substance: CLOZAPINE
     Indication: Borderline personality disorder
  3. CLOZARIL [Suspect]
     Active Substance: CLOZAPINE
     Indication: Schizophrenia
  4. CLOZARIL [Suspect]
     Active Substance: CLOZAPINE
  5. CLOZARIL [Suspect]
     Active Substance: CLOZAPINE
  6. PROPRANOLOL [Concomitant]
     Active Substance: PROPRANOLOL HYDROCHLORIDE

REACTIONS (8)
  - Seizure [Unknown]
  - Viral infection [Unknown]
  - Antipsychotic drug level increased [Unknown]
  - Tachycardia [Recovered/Resolved]
  - Palpitations [Unknown]
  - Hyperhidrosis [Unknown]
  - Agitation [Unknown]
  - Off label use [Unknown]

NARRATIVE: CASE EVENT DATE: 20250407
